FAERS Safety Report 7578114-7 (Version None)
Quarter: 2011Q2

REPORT INFORMATION
  Report Type: 
  Country: None (occurrence: None)
  Receive Date: 20110621
  Receipt Date: 20110613
  Transmission Date: 20111010
  Serious: Yes (Other)
  Sender: FDA-Public Use
  Company Number: 2011SP024913

PATIENT
  Age: 7 Year
  Sex: Female

DRUGS (1)
  1. NASONEX [Suspect]
     Indication: NASOPHARYNGITIS
     Dosage: NAS
     Route: 045
     Dates: start: 20101201, end: 20110501

REACTIONS (4)
  - FATIGUE [None]
  - PHOTOSENSITIVITY REACTION [None]
  - PRURITUS [None]
  - RESTLESSNESS [None]
